FAERS Safety Report 17884083 (Version 3)
Quarter: 2020Q4

REPORT INFORMATION
  Report Type: Spontaneous
  Country: US (occurrence: US)
  Receive Date: 20200611
  Receipt Date: 20201208
  Transmission Date: 20210113
  Serious: Yes (Other)
  Sender: FDA-Public Use
  Company Number: US-BIOGEN-2020BI00884774

PATIENT
  Age: 42 Year
  Sex: Female

DRUGS (3)
  1. TECFIDERA [Suspect]
     Active Substance: DIMETHYL FUMARATE
     Dosage: MAINTENANCE DOSE
     Route: 048
     Dates: start: 202005, end: 202007
  2. TECFIDERA [Suspect]
     Active Substance: DIMETHYL FUMARATE
     Indication: RELAPSING-REMITTING MULTIPLE SCLEROSIS
     Dosage: STARTING DOSE
     Route: 048
     Dates: start: 20200522
  3. TECFIDERA [Suspect]
     Active Substance: DIMETHYL FUMARATE
     Dosage: MAINTENANCE DOSE
     Route: 048
     Dates: start: 20200609

REACTIONS (16)
  - Liver injury [Unknown]
  - Multiple sclerosis [Unknown]
  - Pruritus [Unknown]
  - Abdominal pain upper [Unknown]
  - Multiple sclerosis relapse [Unknown]
  - Haemangioma of liver [Unknown]
  - Hepatomegaly [Unknown]
  - Nausea [Unknown]
  - Abdominal discomfort [Unknown]
  - Flushing [Unknown]
  - Diarrhoea [Unknown]
  - Vomiting [Unknown]
  - Faeces discoloured [Unknown]
  - Hepatic pain [Unknown]
  - Rash [Unknown]
  - Hepatitis [Unknown]

NARRATIVE: CASE EVENT DATE: 2020
